FAERS Safety Report 5138592-X (Version None)
Quarter: 2006Q4

REPORT INFORMATION
  Report Type: 
  Country: None (occurrence: None)
  Receive Date: 20061030
  Receipt Date: 20061024
  Transmission Date: 20070319
  Serious: Yes (Life-Threatening)
  Sender: FDA-Public Use
  Company Number: AU-BRISTOL-MYERS SQUIBB COMPANY-13556485

PATIENT
  Age: 50 Year
  Sex: Male

DRUGS (1)
  1. TAXOL [Suspect]
     Route: 042
     Dates: start: 20041202, end: 20041202

REACTIONS (5)
  - HYPOTENSION [None]
  - LOSS OF CONSCIOUSNESS [None]
  - PARAESTHESIA [None]
  - TACHYCARDIA [None]
  - VISION BLURRED [None]
